FAERS Safety Report 13721146 (Version 1)
Quarter: 2017Q3

REPORT INFORMATION
  Report Type: Spontaneous
  Country: US (occurrence: US)
  Receive Date: 20170705
  Receipt Date: 20170705
  Transmission Date: 20171127
  Serious: No
  Sender: FDA-Public Use
  Company Number: None

PATIENT
  Age: 53 Year
  Sex: Female
  Weight: 82.35 kg

DRUGS (1)
  1. ARMODAFINIL. [Suspect]
     Active Substance: ARMODAFINIL
     Indication: NARCOLEPSY
     Dosage: ?          OTHER DOSE:MG;?
     Route: 048
     Dates: start: 20170601, end: 20170705

REACTIONS (4)
  - Somnolence [None]
  - Depression [None]
  - Product substitution issue [None]
  - Apathy [None]

NARRATIVE: CASE EVENT DATE: 20170601
